FAERS Safety Report 9983947 (Version 2)
Quarter: 2014Q1

REPORT INFORMATION
  Report Type: Report from Study
  Country: PR (occurrence: PR)
  Receive Date: 20140307
  Receipt Date: 20140307
  Transmission Date: 20141002
  Serious: No
  Sender: FDA-Public Use
  Company Number: PR-ABBVIE-13P-131-1042239-00

PATIENT
  Age: 50 Year
  Sex: 0
  Weight: 104.42 kg

DRUGS (5)
  1. HUMIRA [Suspect]
     Indication: PSORIASIS
     Route: 058
     Dates: start: 201211
  2. HUMIRA [Suspect]
     Indication: PSORIATIC ARTHROPATHY
  3. CLOBETASONE [Concomitant]
     Indication: PSORIASIS
     Route: 061
  4. VERAPAMIL [Concomitant]
     Indication: HYPERTENSION
     Route: 048
  5. ENAPRIL [Concomitant]
     Indication: HYPERTENSION
     Route: 048

REACTIONS (1)
  - Injection site pain [Recovered/Resolved]
